FAERS Safety Report 20647015 (Version 2)
Quarter: 2022Q2

REPORT INFORMATION
  Report Type: Report from Study
  Country: US (occurrence: US)
  Receive Date: 20220329
  Receipt Date: 20220422
  Transmission Date: 20220721
  Serious: Yes (Hospitalization)
  Sender: FDA-Public Use
  Company Number: US-SAREPTA THERAPEUTICS INC.-SRP2022-002143

PATIENT
  Age: 14 Year
  Sex: Male
  Weight: 45 kg

DRUGS (20)
  1. ETEPLIRSEN [Suspect]
     Active Substance: ETEPLIRSEN
     Indication: Product used for unknown indication
     Dosage: 1100 MILLIGRAM WEEKLY
     Route: 042
     Dates: start: 20171006
  2. DELTASONE [Concomitant]
     Active Substance: PREDNISONE
     Indication: Duchenne muscular dystrophy
     Dosage: 15 MILLIGRAM, QD
     Route: 048
     Dates: start: 20120222
  3. PEPCID AC [Concomitant]
     Active Substance: FAMOTIDINE
     Indication: Duchenne muscular dystrophy
     Dosage: 20 MILLIGRAM, QD
     Route: 048
     Dates: start: 20200505
  4. ZESTRIL [Concomitant]
     Active Substance: LISINOPRIL
     Indication: Duchenne muscular dystrophy
     Dosage: 2.5 MILLIGRAM, QD
     Route: 048
     Dates: start: 20171025
  5. INSPRA [Concomitant]
     Active Substance: EPLERENONE
     Indication: Duchenne muscular dystrophy
     Dosage: 12.5 MILLIGRAM, QD
     Route: 048
     Dates: start: 20190925
  6. COREG [Concomitant]
     Active Substance: CARVEDILOL
     Indication: Duchenne muscular dystrophy
     Dosage: 3.125 MILLIGRAM, BID
     Route: 048
     Dates: start: 20200923
  7. VITAMIN D3 [Concomitant]
     Active Substance: CHOLECALCIFEROL
     Indication: Duchenne muscular dystrophy
     Dosage: 50 MICROGRAM, QD
     Route: 048
     Dates: start: 20140501
  8. ZOLOFT [Concomitant]
     Active Substance: SERTRALINE HYDROCHLORIDE
     Indication: Major depression
     Dosage: 25 MILLIGRAM, QD
     Route: 048
     Dates: start: 20190930
  9. STRATTERA [Concomitant]
     Active Substance: ATOMOXETINE HYDROCHLORIDE
     Indication: Attention deficit hyperactivity disorder
     Dosage: 40 MILLIGRAM, QD
     Route: 048
     Dates: start: 20210921
  10. LIDOCAINE [Concomitant]
     Active Substance: LIDOCAINE
     Indication: Duchenne muscular dystrophy
     Dosage: 4% CREAM, AS NEEDED
  11. LIDOCAINE [Concomitant]
     Active Substance: LIDOCAINE
     Indication: Vascular device user
  12. EMLA [Concomitant]
     Active Substance: LIDOCAINE\PRILOCAINE
     Indication: Duchenne muscular dystrophy
     Dosage: 30-60 MIN PRIOR TO BLOOD DRAWS
  13. EMLA [Concomitant]
     Active Substance: LIDOCAINE\PRILOCAINE
     Indication: Growth failure
  14. MELATONIN [Concomitant]
     Active Substance: MELATONIN
     Indication: Product used for unknown indication
     Dosage: AS NEEDED
     Route: 048
  15. VITAMINS NOS [Concomitant]
     Active Substance: VITAMINS
     Indication: Product used for unknown indication
     Route: 048
  16. ZOFRAN [Concomitant]
     Active Substance: ONDANSETRON HYDROCHLORIDE
     Indication: Vomiting psychogenic
     Dosage: 2 MILLIGRAM, Q8H
     Route: 048
  17. ZOFRAN [Concomitant]
     Active Substance: ONDANSETRON HYDROCHLORIDE
     Indication: Nausea
  18. ZANTAC [Concomitant]
     Active Substance: RANITIDINE HYDROCHLORIDE
     Indication: Duchenne muscular dystrophy
     Dosage: 75 MILLIGRAM, QD
     Route: 048
  19. ZANTAC [Concomitant]
     Active Substance: RANITIDINE HYDROCHLORIDE
     Indication: Vomiting psychogenic
  20. ZANTAC [Concomitant]
     Active Substance: RANITIDINE HYDROCHLORIDE
     Indication: Nausea

REACTIONS (6)
  - Femur fracture [Recovering/Resolving]
  - Constipation [Unknown]
  - Nausea [Unknown]
  - Fall [Unknown]
  - COVID-19 [Unknown]
  - Procedural pain [Recovering/Resolving]

NARRATIVE: CASE EVENT DATE: 20220208
